FAERS Safety Report 23715477 (Version 7)
Quarter: 2025Q1

REPORT INFORMATION
  Report Type: Report from Study
  Country: KR (occurrence: KR)
  Receive Date: 20240407
  Receipt Date: 20250227
  Transmission Date: 20250409
  Serious: Yes (Death, Hospitalization, Other)
  Sender: ABBVIE
  Company Number: KR-ABBVIE-5705069

PATIENT
  Age: 81 Year
  Sex: Female
  Weight: 59 kg

DRUGS (29)
  1. VENCLEXTA [Suspect]
     Active Substance: VENETOCLAX
     Indication: Acute myeloid leukaemia
     Route: 048
     Dates: start: 20240223, end: 20240223
  2. VENCLEXTA [Suspect]
     Active Substance: VENETOCLAX
     Indication: Acute myeloid leukaemia
     Route: 048
     Dates: start: 20240221, end: 20240221
  3. VENCLEXTA [Suspect]
     Active Substance: VENETOCLAX
     Indication: Acute myeloid leukaemia
     Route: 048
     Dates: start: 20240220, end: 20240220
  4. VENCLEXTA [Suspect]
     Active Substance: VENETOCLAX
     Indication: Acute myeloid leukaemia
     Route: 048
     Dates: start: 20240222, end: 20240222
  5. VENCLEXTA [Suspect]
     Active Substance: VENETOCLAX
     Indication: Acute myeloid leukaemia
     Route: 048
     Dates: start: 20240715, end: 20240823
  6. ALLOPURINOL [Concomitant]
     Active Substance: ALLOPURINOL
     Indication: Prophylaxis
     Route: 048
     Dates: start: 20240220, end: 20240224
  7. Tasna [Concomitant]
     Indication: Prophylaxis
     Route: 048
     Dates: start: 20240826, end: 20240830
  8. NOXAFIL [Concomitant]
     Active Substance: POSACONAZOLE
     Indication: Infection prophylaxis
     Route: 048
     Dates: start: 20240223, end: 20240430
  9. ASPIRIN [Concomitant]
     Active Substance: ASPIRIN
     Indication: Hypertension
     Route: 048
     Dates: start: 201510, end: 20240823
  10. MAXIPIME [Concomitant]
     Active Substance: CEFEPIME HYDROCHLORIDE
     Indication: Infection prophylaxis
     Route: 042
     Dates: start: 20240220, end: 20240224
  11. METOCLOPRAMIDE HYDROCHLORIDE [Concomitant]
     Active Substance: METOCLOPRAMIDE HYDROCHLORIDE
     Indication: Nausea
     Route: 048
     Dates: start: 20240401, end: 20240430
  12. DIABEX [Concomitant]
     Active Substance: METFORMIN HYDROCHLORIDE
     Indication: Diabetes mellitus
     Route: 048
     Dates: start: 201510, end: 20240823
  13. Kanarb [Concomitant]
     Indication: Hypertension
     Route: 048
     Dates: start: 201510, end: 20240823
  14. Dichlozid [Concomitant]
     Indication: Hypertension
     Route: 048
     Dates: start: 201510, end: 20240823
  15. LEVOFLOXACIN [Concomitant]
     Active Substance: LEVOFLOXACIN
     Indication: Infection prophylaxis
     Route: 048
     Dates: start: 20240224, end: 20240430
  16. LEVOFLOXACIN [Concomitant]
     Active Substance: LEVOFLOXACIN
     Indication: Infection prophylaxis
     Route: 048
     Dates: start: 20240505, end: 20240514
  17. Eltan sr [Concomitant]
     Indication: Hypertension
     Route: 048
     Dates: start: 201510, end: 20240823
  18. Mago [Concomitant]
     Indication: Constipation
     Route: 048
     Dates: start: 20240401, end: 20240430
  19. LINAGLIPTIN [Concomitant]
     Active Substance: LINAGLIPTIN
     Indication: Diabetes mellitus
     Route: 048
     Dates: start: 201510, end: 20240823
  20. Vastinan MR [Concomitant]
     Indication: Hypertension
     Route: 048
     Dates: start: 201510, end: 20240823
  21. LIPITOR [Concomitant]
     Active Substance: ATORVASTATIN CALCIUM
     Indication: Dyslipidaemia
     Route: 048
     Dates: start: 201510, end: 20240823
  22. Peniramin [Concomitant]
     Indication: Rash
     Route: 048
     Dates: start: 20240311, end: 20240318
  23. PLAVIX [Concomitant]
     Active Substance: CLOPIDOGREL BISULFATE
     Indication: Dyslipidaemia
     Route: 048
     Dates: start: 201510, end: 20240823
  24. DACOGEN [Concomitant]
     Active Substance: DECITABINE
     Indication: Acute myeloid leukaemia
     Route: 042
     Dates: start: 20240401, end: 20240405
  25. DACOGEN [Concomitant]
     Active Substance: DECITABINE
     Indication: Acute myeloid leukaemia
     Route: 042
     Dates: start: 20240805, end: 20240809
  26. DACOGEN [Concomitant]
     Active Substance: DECITABINE
     Indication: Acute myeloid leukaemia
     Route: 042
     Dates: start: 20240220, end: 20240224
  27. DACOGEN [Concomitant]
     Active Substance: DECITABINE
     Indication: Acute myeloid leukaemia
     Route: 042
     Dates: start: 20240527, end: 20240531
  28. FESTAL PLUS [Concomitant]
     Active Substance: DIMETHICONE\PANCRELIPASE\URSODIOL
     Indication: Nausea
     Route: 048
     Dates: start: 20240401, end: 20240430
  29. Solondo [Concomitant]
     Indication: Rash
     Route: 048
     Dates: start: 20240311, end: 20240318

REACTIONS (4)
  - Sepsis [Fatal]
  - Asthenia [Not Recovered/Not Resolved]
  - Pneumonia [Fatal]
  - Febrile neutropenia [Recovered/Resolved]

NARRATIVE: CASE EVENT DATE: 20240319
